FAERS Safety Report 5409675-1 (Version None)
Quarter: 2007Q3

REPORT INFORMATION
  Report Type: 
  Country: None (occurrence: None)
  Receive Date: 20070809
  Receipt Date: 20070803
  Transmission Date: 20080115
  Serious: Yes (Death, Other)
  Sender: FDA-Public Use
  Company Number: US-ELI_LILLY_AND_COMPANY-US200705005250

PATIENT
  Age: 78 Year
  Sex: Male

DRUGS (4)
  1. ALIMTA [Suspect]
     Indication: MESOTHELIOMA
  2. FOLIC ACID [Concomitant]
  3. VITAMIN B-12 [Concomitant]
  4. CORTICOSTEROID NOS [Concomitant]

REACTIONS (5)
  - CARDIAC FAILURE CONGESTIVE [None]
  - CARDIOGENIC SHOCK [None]
  - DEEP VEIN THROMBOSIS [None]
  - MESOTHELIOMA MALIGNANT ADVANCED [None]
  - PULMONARY EMBOLISM [None]
